FAERS Safety Report 26171226 (Version 2)
Quarter: 2025Q4

REPORT INFORMATION
  Report Type: Spontaneous
  Country: JP (occurrence: JP)
  Receive Date: 20251217
  Receipt Date: 20251223
  Transmission Date: 20260118
  Serious: Yes (Hospitalization)
  Sender: GUERBET
  Company Number: JP-GUERBETG_JAPAN-JP-20250197

PATIENT
  Age: 84 Year
  Sex: Male

DRUGS (1)
  1. OPTIRAY 320 [Suspect]
     Active Substance: IOVERSOL
     Indication: Computerised tomogram
     Route: 042

REACTIONS (3)
  - Platelet count decreased [Recovering/Resolving]
  - Contrast media allergy [Recovering/Resolving]
  - Disseminated intravascular coagulation [Recovering/Resolving]
